FAERS Safety Report 21272742 (Version 2)
Quarter: 2022Q3

REPORT INFORMATION
  Report Type: Report from Study
  Country: CA (occurrence: CA)
  Receive Date: 20220831
  Receipt Date: 20220906
  Transmission Date: 20221026
  Serious: Yes (Other)
  Sender: FDA-Public Use
  Company Number: CA-BAYER-2022A119017

PATIENT
  Sex: Male

DRUGS (5)
  1. EYLEA [Suspect]
     Active Substance: AFLIBERCEPT
     Indication: Age-related macular degeneration
     Dosage: Q 6-8 WEEKS; SOLUTION FOR INJECTION, STRENGTH: 40MG/ML
     Dates: start: 20150812, end: 20150812
  2. EYLEA [Suspect]
     Active Substance: AFLIBERCEPT
     Dosage: Q 6-8 WEEKS; SOLUTION FOR INJECTION, STRENGTH: 40MG/ML
     Dates: start: 20220817, end: 20220817
  3. LUCENTIS [Concomitant]
     Active Substance: RANIBIZUMAB
     Indication: Product used for unknown indication
     Dosage: UNK
     Dates: start: 20140604, end: 20150708
  4. BISOPROLOL [Concomitant]
     Active Substance: BISOPROLOL
     Indication: Product used for unknown indication
     Dosage: UNK
  5. ZYLOPRIM [Concomitant]
     Active Substance: ALLOPURINOL
     Indication: Product used for unknown indication
     Dosage: UNK

REACTIONS (3)
  - Blindness [Unknown]
  - Endophthalmitis [Unknown]
  - Headache [Unknown]

NARRATIVE: CASE EVENT DATE: 20220819
